FAERS Safety Report 6032355-9 (Version None)
Quarter: 2008Q4

REPORT INFORMATION
  Report Type: 
  Country: None (occurrence: None)
  Receive Date: 20081222
  Receipt Date: 20081027
  Transmission Date: 20090506
  Serious: No
  Sender: FDA-Public Use
  Company Number: US-WYE-H06702608

PATIENT
  Age: 36 Year
  Sex: Female
  Weight: 74.91 kg

DRUGS (4)
  1. PRISTIQ [Suspect]
     Indication: ANXIETY
     Dosage: 100 MG 1X PER 1 DAY ; 50 MG 1X PER 1 DAY, ORAL
     Route: 048
     Dates: start: 20081015, end: 20081021
  2. PRISTIQ [Suspect]
     Indication: DEPRESSION
     Dosage: 100 MG 1X PER 1 DAY ; 50 MG 1X PER 1 DAY, ORAL
     Route: 048
     Dates: start: 20081015, end: 20081021
  3. PRISTIQ [Suspect]
     Indication: ANXIETY
     Dosage: 100 MG 1X PER 1 DAY ; 50 MG 1X PER 1 DAY, ORAL
     Route: 048
     Dates: start: 20081022
  4. PRISTIQ [Suspect]
     Indication: DEPRESSION
     Dosage: 100 MG 1X PER 1 DAY ; 50 MG 1X PER 1 DAY, ORAL
     Route: 048
     Dates: start: 20081022

REACTIONS (5)
  - DRUG INEFFECTIVE [None]
  - ELECTRIC SHOCK [None]
  - FEELING ABNORMAL [None]
  - MIGRAINE [None]
  - PARAESTHESIA [None]
